FAERS Safety Report 8904449 (Version 6)
Quarter: 2013Q3

REPORT INFORMATION
  Report Type: Spontaneous
  Country: US (occurrence: US)
  Receive Date: 20121112
  Receipt Date: 20130711
  Transmission Date: 20140515
  Serious: Yes (Hospitalization, Other)
  Sender: FDA-Public Use
  Company Number: US-009507513-1206USA04844

PATIENT
  Sex: Female
  Weight: 61.22 kg

DRUGS (4)
  1. FOSAMAX [Suspect]
     Indication: OSTEOPENIA
     Dosage: 10 MG, QD
     Route: 048
     Dates: start: 1995
  2. FOSAMAX [Suspect]
     Indication: OSTEOPOROSIS
     Dosage: 70 MG, QW
     Route: 048
     Dates: start: 20031212, end: 20040413
  3. ALENDRONATE SODIUM [Suspect]
     Indication: OSTEOPOROSIS
     Dosage: 70 MG, QW
     Route: 048
     Dates: start: 20100815, end: 20110528
  4. ALENDRONATE SODIUM [Suspect]
     Indication: OSTEOPOROSIS
     Dosage: 70 MG, QW
     Route: 048
     Dates: start: 20090705, end: 20100226

REACTIONS (17)
  - Open reduction of fracture [Unknown]
  - Fall [Unknown]
  - Fall [Unknown]
  - Hip arthroplasty [Unknown]
  - Cholecystectomy [Unknown]
  - Hip arthroplasty [Unknown]
  - Spinal osteoarthritis [Unknown]
  - Femur fracture [Unknown]
  - Osteonecrosis [Unknown]
  - Intramedullary rod insertion [Unknown]
  - Femur fracture [Recovered/Resolved]
  - Femur fracture [Recovered/Resolved]
  - Low turnover osteopathy [Unknown]
  - Hypertension [Unknown]
  - Sjogren^s syndrome [Unknown]
  - Hypoaesthesia [Unknown]
  - Medical device discomfort [Unknown]
